FAERS Safety Report 23654697 (Version 1)
Quarter: 2024Q1

REPORT INFORMATION
  Report Type: Spontaneous
  Country: CA (occurrence: CA)
  Receive Date: 20240320
  Receipt Date: 20240320
  Transmission Date: 20240410
  Serious: Yes (Other)
  Sender: FDA-Public Use
  Company Number: CA-TEVA-VS-3170904

PATIENT
  Age: 29 Year
  Sex: Female

DRUGS (3)
  1. METHOTREXATE [Suspect]
     Active Substance: METHOTREXATE
     Indication: Polyarteritis nodosa
     Dosage: DOSAGE FORM - NOT SPECIFIED
     Route: 065
  2. PREDNISONE [Suspect]
     Active Substance: PREDNISONE
     Indication: Polyarteritis nodosa
     Dosage: DOSAGE FORM - NOT SPECIFIED
     Route: 065
  3. MYCOPHENOLATE MOFETIL [Suspect]
     Active Substance: MYCOPHENOLATE MOFETIL
     Indication: Polyarteritis nodosa
     Dosage: DOSAGE FORM - NOT SPECIFIED
     Route: 065

REACTIONS (3)
  - Hepatic fibrosis [Unknown]
  - Therapy partial responder [Unknown]
  - Therapeutic response shortened [Unknown]
